FAERS Safety Report 20626490 (Version 1)
Quarter: 2022Q1

REPORT INFORMATION
  Report Type: Other
  Country: US (occurrence: None)
  Receive Date: 20220323
  Receipt Date: 20220323
  Transmission Date: 20220423
  Serious: Yes (Other)
  Sender: FDA-Public Use
  Company Number: US-ROCHE-2274696

PATIENT
  Sex: Female
  Weight: 56.296 kg

DRUGS (24)
  1. OCREVUS [Suspect]
     Active Substance: OCRELIZUMAB
     Indication: Secondary progressive multiple sclerosis
     Dosage: 1ST HALF DOSE
     Route: 042
     Dates: start: 20180918
  2. OCREVUS [Suspect]
     Active Substance: OCRELIZUMAB
     Indication: Relapsing-remitting multiple sclerosis
     Dosage: 2ND HALF DOSE?NEXT DOSE: 05/MAR/2019
     Route: 042
     Dates: start: 20181002
  3. OCREVUS [Suspect]
     Active Substance: OCRELIZUMAB
     Route: 042
     Dates: start: 20180918
  4. OCREVUS [Suspect]
     Active Substance: OCRELIZUMAB
     Route: 042
     Dates: start: 201809
  5. BACLOFEN [Concomitant]
     Active Substance: BACLOFEN
     Indication: Muscle spasticity
     Dosage: 8AM AND 5PM
     Route: 048
  6. BACLOFEN [Concomitant]
     Active Substance: BACLOFEN
     Dosage: AT BEDTIME
     Route: 048
  7. BACLOFEN [Concomitant]
     Active Substance: BACLOFEN
     Route: 048
  8. COVID-19 VACCINE [Concomitant]
     Dates: start: 20210504
  9. COVID-19 VACCINE [Concomitant]
     Dates: start: 20210525
  10. MODERNA COVID-19 VACCINE [Concomitant]
     Active Substance: ELASOMERAN
     Dates: start: 20210721
  11. CBD LOTION [Concomitant]
  12. VALIUM [Concomitant]
     Active Substance: DIAZEPAM
     Indication: Muscle spasticity
     Route: 048
  13. PROVIGIL [Concomitant]
     Active Substance: MODAFINIL
     Indication: Fatigue
     Route: 048
  14. VITAMIN D3 [Concomitant]
     Active Substance: CHOLECALCIFEROL
     Route: 048
  15. DITROPAN XL [Concomitant]
     Active Substance: OXYBUTYNIN CHLORIDE
     Indication: Urinary retention
     Route: 048
     Dates: start: 202202
  16. BENICAR HCT [Concomitant]
     Active Substance: HYDROCHLOROTHIAZIDE\OLMESARTAN MEDOXOMIL
     Indication: Blood pressure measurement
     Dosage: 40/12.5MG
     Route: 048
  17. HYDRALAZINE [Concomitant]
     Active Substance: HYDRALAZINE HYDROCHLORIDE
     Indication: Blood pressure measurement
     Route: 048
     Dates: start: 2021
  18. COREG [Concomitant]
     Active Substance: CARVEDILOL
     Indication: Blood pressure measurement
     Route: 048
     Dates: start: 2021
  19. CRESTOR [Concomitant]
     Active Substance: ROSUVASTATIN CALCIUM
     Indication: Blood cholesterol
     Route: 048
     Dates: start: 2022
  20. MIRENA [Concomitant]
     Active Substance: LEVONORGESTREL
  21. PROLIA [Concomitant]
     Active Substance: DENOSUMAB
     Indication: Osteoporosis
     Route: 058
     Dates: start: 2021
  22. TUMS [Concomitant]
     Active Substance: CALCIUM CARBONATE
     Indication: Mineral supplementation
     Route: 048
  23. SYSTANE (HYPROMELLOSE 2910 (4000 MPA.S)) [Concomitant]
     Active Substance: HYPROMELLOSE 2910 (4000 MPA.S)
     Indication: Dry eye
  24. CLOBETASOL PROPIONATE [Concomitant]
     Active Substance: CLOBETASOL PROPIONATE
     Indication: Psoriasis
     Route: 061

REACTIONS (20)
  - Secondary progressive multiple sclerosis [Not Recovered/Not Resolved]
  - General physical health deterioration [Not Recovered/Not Resolved]
  - Immunodeficiency [Unknown]
  - Asthenia [Not Recovered/Not Resolved]
  - Mobility decreased [Not Recovered/Not Resolved]
  - Muscular weakness [Not Recovered/Not Resolved]
  - Muscle spasticity [Not Recovered/Not Resolved]
  - Urinary retention [Not Recovered/Not Resolved]
  - Blood cholesterol increased [Unknown]
  - Nasal congestion [Not Recovered/Not Resolved]
  - Blood pressure increased [Not Recovered/Not Resolved]
  - Dry eye [Not Recovered/Not Resolved]
  - Nasal dryness [Not Recovered/Not Resolved]
  - Cholelithiasis [Recovered/Resolved]
  - Syncope [Recovered/Resolved]
  - Fall [Unknown]
  - Gastritis [Unknown]
  - Cholecystitis chronic [Unknown]
  - B-lymphocyte count decreased [Not Recovered/Not Resolved]
  - Fatigue [Not Recovered/Not Resolved]

NARRATIVE: CASE EVENT DATE: 20200101
